FAERS Safety Report 21816626 (Version 1)
Quarter: 2023Q1

REPORT INFORMATION
  Report Type: Spontaneous
  Country: US (occurrence: US)
  Receive Date: 20230104
  Receipt Date: 20230104
  Transmission Date: 20230417
  Serious: No
  Sender: FDA-Public Use
  Company Number: US-BRISTOL-MYERS SQUIBB COMPANY-BMS-2022-002926

PATIENT
  Age: 72 Year
  Sex: Female

DRUGS (1)
  1. REVLIMID [Suspect]
     Active Substance: LENALIDOMIDE
     Indication: Multiple sclerosis
     Dosage: FREQ:  EVERY DAY FOR 21 DAYS
     Route: 048

REACTIONS (3)
  - Abdominal discomfort [Unknown]
  - Memory impairment [Unknown]
  - Off label use [Unknown]
